FAERS Safety Report 15491785 (Version 1)
Quarter: 2018Q4

REPORT INFORMATION
  Report Type: Report from Study
  Country: FR (occurrence: FR)
  Receive Date: 20181012
  Receipt Date: 20181012
  Transmission Date: 20190205
  Serious: Yes (Death, Other)
  Sender: FDA-Public Use
  Company Number: FR-AUROBINDO-AUR-APL-2018-050181

PATIENT
  Age: 59 Year
  Sex: Female

DRUGS (2)
  1. IBUPROFEN. [Suspect]
     Active Substance: IBUPROFEN
     Indication: IMMUNE THROMBOCYTOPENIC PURPURA
     Dosage: UNK
     Route: 065
  2. LETROZOLE. [Concomitant]
     Active Substance: LETROZOLE
     Indication: IMMUNE THROMBOCYTOPENIC PURPURA
     Dosage: UNK
     Route: 065

REACTIONS (4)
  - Purpura [Unknown]
  - Gingival bleeding [Unknown]
  - Haemorrhage intracranial [Fatal]
  - Petechiae [Unknown]
